FAERS Safety Report 8459361-9 (Version None)
Quarter: 2012Q2

REPORT INFORMATION
  Report Type: 
  Country: None (occurrence: None)
  Receive Date: 20120622
  Receipt Date: 20120612
  Transmission Date: 20120825
  Serious: Yes (Hospitalization)
  Sender: FDA-Public Use
  Company Number: JP-UCBSA-053519

PATIENT
  Age: 36 Year
  Sex: Male
  Weight: 19.6 kg

DRUGS (11)
  1. GASCON [Concomitant]
     Indication: FLATULENCE
     Dosage: DAILY DOSE : 12 ML
     Route: 048
     Dates: start: 20120301, end: 20120327
  2. KEPPRA [Suspect]
     Indication: EPILEPSY
     Route: 048
     Dates: start: 20120307, end: 20120310
  3. KEPPRA [Suspect]
     Route: 048
     Dates: start: 20120226, end: 20120306
  4. PHENYTOIN SODIUM CAP [Concomitant]
     Dosage: DAILY DOSE : 150 MG
     Route: 048
     Dates: start: 20120228
  5. AMPICILLIN SODIUM/SULBACTAM SODIUM [Concomitant]
     Indication: INFECTION
     Dosage: DAILY DOSE: 1.5 G
     Route: 042
     Dates: start: 20120216, end: 20120310
  6. FUNGUARD [Concomitant]
     Indication: INFECTION
     Dosage: DAILY DOSE : 100 MG
     Route: 042
     Dates: start: 20120227
  7. PHENYTOIN SODIUM CAP [Concomitant]
     Indication: EPILEPSY
     Dosage: DAILY DOSE : 500 MG
     Route: 042
     Dates: start: 20120213, end: 20120215
  8. CALFINA [Concomitant]
     Indication: ANTIPYRESIS
     Dosage: DAILY DOSE : 0.5 MCG
     Route: 048
     Dates: start: 20120219, end: 20120409
  9. MIDAZOLAM HCL [Concomitant]
     Indication: SEDATIVE THERAPY
     Route: 042
     Dates: start: 20120213, end: 20120229
  10. PHENOBARBITAL TAB [Concomitant]
     Indication: EPILEPSY
     Dosage: DAILY DOSE : 140 MG
     Route: 048
     Dates: start: 20120213, end: 20120324
  11. FAMOTIDINE [Concomitant]
     Indication: GASTRITIS PROPHYLAXIS
     Dosage: DAILY DOSE : 20 MG
     Route: 048
     Dates: start: 20120217

REACTIONS (1)
  - AGRANULOCYTOSIS [None]
